FAERS Safety Report 18706926 (Version 1)
Quarter: 2021Q1

REPORT INFORMATION
  Report Type: Spontaneous
  Country: AR (occurrence: AR)
  Receive Date: 20210106
  Receipt Date: 20210106
  Transmission Date: 20210419
  Serious: Yes (Other)
  Sender: FDA-Public Use
  Company Number: AR-ELI_LILLY_AND_COMPANY-AR202012013829

PATIENT
  Age: 57 Year
  Sex: Male

DRUGS (1)
  1. CIALIS [Suspect]
     Active Substance: TADALAFIL
     Indication: SUBSTANCE USE
     Dosage: ? OF TABLET, UNKNOWN
     Route: 048
     Dates: start: 20201226

REACTIONS (4)
  - Drug abuse [Unknown]
  - Off label use [Unknown]
  - Heat stroke [Unknown]
  - Muscle contracture [Recovered/Resolved]

NARRATIVE: CASE EVENT DATE: 20201226
